FAERS Safety Report 5776243-1 (Version None)
Quarter: 2008Q2

REPORT INFORMATION
  Report Type: 
  Country: None (occurrence: None)
  Receive Date: 20080616
  Receipt Date: 20080610
  Transmission Date: 20081010
  Serious: Yes (Other)
  Sender: FDA-Public Use
  Company Number: URSO-2008-062

PATIENT
  Age: 53 Year
  Sex: Male

DRUGS (1)
  1. URSO FORTE [Suspect]
     Indication: PRURITUS
     Dosage: 1000 MG/M2, PO
     Route: 048
     Dates: start: 20071201, end: 20080401

REACTIONS (1)
  - HEPATIC ENZYME INCREASED [None]
